FAERS Safety Report 9786229 (Version 1)
Quarter: 2013Q4

REPORT INFORMATION
  Report Type: Spontaneous
  Country: FR (occurrence: FR)
  Receive Date: 20131227
  Receipt Date: 20131227
  Transmission Date: 20140711
  Serious: Yes (Hospitalization)
  Sender: FDA-Public Use
  Company Number: FR-PFIZER INC-2013366036

PATIENT
  Age: 87 Year
  Sex: Female

DRUGS (21)
  1. AMLOR [Suspect]
     Indication: HYPERTENSION
     Dosage: UNK
     Dates: start: 20130925, end: 20131004
  2. AMLOR [Suspect]
     Dosage: 10 MG, DAILY
     Route: 048
     Dates: start: 20131017, end: 20131024
  3. HEPARIN SODIUM [Suspect]
     Indication: PROPHYLAXIS
     Dosage: 9000 IU/24 ML
     Route: 042
     Dates: start: 20131017, end: 20131022
  4. FLAGYL [Suspect]
     Indication: CLOSTRIDIUM DIFFICILE INFECTION
     Dosage: 500 MG, DAILY
     Route: 048
     Dates: start: 20131007, end: 20131021
  5. CETIRIZINE HYDROCHLORIDE [Suspect]
     Indication: PRURITUS
     Dosage: 10 MG, DAILY
     Route: 048
     Dates: start: 20130924, end: 20131014
  6. FUROSEMIDE [Concomitant]
     Dosage: UNK
  7. ALLOPURINOL [Concomitant]
     Dosage: UNK
  8. ICAZ LP [Concomitant]
     Dosage: UNK
  9. CELIPROLOL [Concomitant]
     Dosage: UNK
  10. RASILEZ [Concomitant]
     Dosage: UNK
  11. MONOCRIXO [Concomitant]
  12. DOLIPRANE [Concomitant]
     Indication: PAIN
     Dosage: 1 G, 1X/DAY
     Route: 048
     Dates: end: 20131021
  13. ATARAX [Concomitant]
     Dosage: UNK
  14. NORSET [Concomitant]
     Dosage: UNK
  15. COLCHICINE [Concomitant]
  16. STILNOX [Concomitant]
  17. AERIUS [Concomitant]
     Dosage: UNK
     Dates: start: 20130924, end: 20131014
  18. ARIXTRA [Concomitant]
     Dosage: UNK
     Dates: start: 20130910
  19. PYOSTACINE [Concomitant]
     Dosage: UNK
     Dates: start: 20130910
  20. LOVENOX [Concomitant]
     Dosage: UNK
     Dates: start: 20130921
  21. CALCIPARIN [Concomitant]
     Indication: PROPHYLAXIS
     Dosage: UNK
     Route: 058
     Dates: start: 20130930, end: 20131014

REACTIONS (3)
  - Thrombocytopenia [Recovering/Resolving]
  - Metabolic acidosis [Unknown]
  - Renal failure [Unknown]
